FAERS Safety Report 16315066 (Version 1)
Quarter: 2019Q2

REPORT INFORMATION
  Report Type: Spontaneous
  Country: US (occurrence: US)
  Receive Date: 20190409
  Receipt Date: 20190409
  Transmission Date: 20190711
  Serious: Yes (Life-Threatening)
  Sender: FDA-Public Use
  Company Number: None

PATIENT
  Age: 63 Year
  Sex: Male
  Weight: 106.59 kg

DRUGS (1)
  1. PENICILLIN [Suspect]
     Active Substance: PENICILLIN
     Indication: ANTIBIOTIC THERAPY
     Dates: start: 20190319, end: 20190319

REACTIONS (2)
  - Anaphylactic reaction [None]
  - Documented hypersensitivity to administered product [None]

NARRATIVE: CASE EVENT DATE: 20190319
